FAERS Safety Report 5382068-1 (Version None)
Quarter: 2007Q3

REPORT INFORMATION
  Report Type: 
  Country: None (occurrence: None)
  Receive Date: 20070709
  Receipt Date: 20070627
  Transmission Date: 20080115
  Serious: Yes (Other)
  Sender: FDA-Public Use
  Company Number: BR-ROCHE-503856

PATIENT
  Age: 25 Year
  Sex: Female
  Weight: 52.5 kg

DRUGS (2)
  1. RIVOTRIL [Suspect]
     Indication: PANIC ATTACK
     Dosage: ORAL CLONAZEPAM 0.5/DAY STARTED ON 24 MAY 2007 FOR PANIC ATTACK, WHICH IS ONGOING AND SUBLINGUAL CL+
     Route: 050
     Dates: start: 20070524
  2. SERTRALINE HYDROCHLORIDE [Concomitant]
     Indication: DEPRESSION
     Dosage: TRADE NAME REPORTED AS SERENATA.

REACTIONS (5)
  - FEELING ABNORMAL [None]
  - HYPERTENSION [None]
  - HYPOTENSION [None]
  - MIGRAINE [None]
  - TACHYCARDIA [None]
